FAERS Safety Report 26093781 (Version 1)
Quarter: 2025Q4

REPORT INFORMATION
  Report Type: Spontaneous
  Country: EU (occurrence: EU)
  Receive Date: 20251126
  Receipt Date: 20251126
  Transmission Date: 20260118
  Serious: Yes (Hospitalization)
  Sender: CHEPLAPHARM
  Company Number: None

PATIENT
  Age: 60 Year
  Sex: Male

DRUGS (3)
  1. OLANZAPINE [Suspect]
     Active Substance: OLANZAPINE
     Indication: Bipolar disorder
     Dosage: DAILY DOSE: 10 MILLIGRAM
     Route: 048
  2. QUETIAPINE [Suspect]
     Active Substance: QUETIAPINE
     Indication: Bipolar disorder
     Dosage: CONFLICTING INFORMATION REGARDING QUETIAPINE DOSAGE. 400 MG PROLONGED-RELEASE TABLET ACCORDING TO...
     Route: 048
  3. QUETIAPINE [Suspect]
     Active Substance: QUETIAPINE
     Indication: Bipolar disorder
     Dosage: CONFLICTING INFORMATION REGARDING QUETIAPINE DOSAGE. 400 MG PROLONGED-RELEASE TABLET ACCORDING TO...
     Route: 048

REACTIONS (11)
  - Parkinsonism [Recovering/Resolving]
  - Muscle rigidity [Recovering/Resolving]
  - Tremor [Recovering/Resolving]
  - Dyskinesia [Recovering/Resolving]
  - Dysphagia [Recovering/Resolving]
  - Dysarthria [Recovering/Resolving]
  - Reduced facial expression [Recovering/Resolving]
  - Parkinsonian gait [Recovering/Resolving]
  - Cogwheel rigidity [Recovering/Resolving]
  - Extrapyramidal disorder [Recovering/Resolving]
  - Weight decreased [Recovering/Resolving]
